FAERS Safety Report 15427973 (Version 1)
Quarter: 2018Q3

REPORT INFORMATION
  Report Type: Spontaneous
  Country: US (occurrence: US)
  Receive Date: 20180926
  Receipt Date: 20180926
  Transmission Date: 20181010
  Serious: No
  Sender: FDA-Public Use
  Company Number: US-DRREDDYS-USA/USA/17/0095501

PATIENT
  Age: 23 Year
  Sex: Female
  Weight: 67.7 kg

DRUGS (1)
  1. FLUCONAZOLE. [Suspect]
     Active Substance: FLUCONAZOLE
     Indication: FUNGAL INFECTION
     Route: 065
     Dates: start: 20171226

REACTIONS (2)
  - Product packaging quantity issue [Unknown]
  - Wrong technique in product usage process [Unknown]
